FAERS Safety Report 15332806 (Version 1)
Quarter: 2018Q3

REPORT INFORMATION
  Report Type: Spontaneous
  Country: US (occurrence: US)
  Receive Date: 20180830
  Receipt Date: 20180830
  Transmission Date: 20181010
  Serious: Yes (Disabling, Other)
  Sender: FDA-Public Use
  Company Number: US-ROCHE-2176660

PATIENT
  Age: 14 Year
  Sex: Male
  Weight: 49 kg

DRUGS (3)
  1. NUTROPIN AQ [Suspect]
     Active Substance: SOMATROPIN
     Dosage: DAILY
     Route: 058
     Dates: start: 201202
  2. NUTROPIN AQ [Suspect]
     Active Substance: SOMATROPIN
     Indication: GROWTH RETARDATION
     Dosage: AQ NUSPIN 20 INJ
     Route: 058
     Dates: start: 20180806, end: 20180806
  3. CLONIDINE. [Concomitant]
     Active Substance: CLONIDINE
     Indication: ATTENTION DEFICIT/HYPERACTIVITY DISORDER
     Dosage: HS
     Route: 048

REACTIONS (2)
  - Neoplasm [Unknown]
  - Ependymoma [Recovering/Resolving]

NARRATIVE: CASE EVENT DATE: 201711
